FAERS Safety Report 9219970 (Version 2)
Quarter: 2013Q2

REPORT INFORMATION
  Report Type: Report from Study
  Country: US (occurrence: US)
  Receive Date: 20130409
  Receipt Date: 20130430
  Transmission Date: 20140414
  Serious: Yes (Hospitalization)
  Sender: FDA-Public Use
  Company Number: US-ROCHE-1209634

PATIENT
  Age: 65 Year
  Sex: Female

DRUGS (7)
  1. KADCYLA [Suspect]
     Indication: BREAST CANCER
     Route: 042
     Dates: start: 20130327, end: 20130327
  2. XELODA [Suspect]
     Indication: PRODUCT USED FOR UNKNOWN INDICATION
     Route: 065
  3. TYKERB [Suspect]
     Indication: PRODUCT USED FOR UNKNOWN INDICATION
     Route: 065
  4. ONDANSETRON [Concomitant]
     Indication: NAUSEA
     Route: 048
  5. METHADONE [Concomitant]
     Indication: PAIN
     Route: 046
  6. LEVOTHYROXIN [Concomitant]
     Indication: HYPOTHYROIDISM
     Route: 048
  7. FUROSEMIDE [Concomitant]
     Indication: OEDEMA
     Route: 048

REACTIONS (8)
  - Jaundice [Recovering/Resolving]
  - Aphasia [Recovering/Resolving]
  - Ocular icterus [Recovering/Resolving]
  - Abasia [Recovering/Resolving]
  - Ammonia increased [Recovering/Resolving]
  - Bile duct obstruction [Recovering/Resolving]
  - Hepatic function abnormal [Recovering/Resolving]
  - Hyperbilirubinaemia [Recovering/Resolving]
